FAERS Safety Report 15707293 (Version 1)
Quarter: 2018Q4

REPORT INFORMATION
  Report Type: Spontaneous
  Country: AT (occurrence: AT)
  Receive Date: 20181210
  Receipt Date: 20181210
  Transmission Date: 20190205
  Serious: No
  Sender: FDA-Public Use
  Company Number: AT-LUPIN PHARMACEUTICALS INC.-2018-08119

PATIENT
  Age: 22 Year
  Sex: Male

DRUGS (2)
  1. QUETIAPINE FUMARATE. [Suspect]
     Active Substance: QUETIAPINE FUMARATE
     Indication: PSYCHIATRIC SYMPTOM
     Dosage: 50 MG, QD (NIGHTLY)
     Route: 065
     Dates: start: 2017, end: 201802
  2. SERTRALINE [Suspect]
     Active Substance: SERTRALINE HYDROCHLORIDE
     Indication: PSYCHIATRIC SYMPTOM
     Dosage: 100 MG, QD
     Route: 065
     Dates: start: 2017, end: 201802

REACTIONS (1)
  - Priapism [Recovering/Resolving]

NARRATIVE: CASE EVENT DATE: 2018
